FAERS Safety Report 5729140-1 (Version None)
Quarter: 2008Q2

REPORT INFORMATION
  Report Type: 
  Country: None (occurrence: None)
  Receive Date: 20080506
  Receipt Date: 20080424
  Transmission Date: 20081010
  Serious: Yes (Other)
  Sender: FDA-Public Use
  Company Number: MX-ROCHE-561157

PATIENT
  Sex: Female
  Weight: 76 kg

DRUGS (4)
  1. ORLISTAT [Suspect]
     Indication: DRUG USE FOR UNKNOWN INDICATION
     Route: 048
     Dates: start: 20080217, end: 20080323
  2. 1 CONCOMITANT DRUG [Concomitant]
     Dosage: DRUG REPORTED AS: SERESIS
     Dates: start: 20070101
  3. HRT [Concomitant]
     Indication: MENOPAUSE
     Dosage: DRUG REPORTED AS: UNSPECIFIED HRT
     Route: 062
     Dates: start: 20000101
  4. STUGERON [Concomitant]
     Indication: DIZZINESS
     Dates: start: 20000101

REACTIONS (2)
  - HYPERTENSION [None]
  - HYPERTENSIVE CRISIS [None]
